FAERS Safety Report 7564602-6 (Version None)
Quarter: 2011Q2

REPORT INFORMATION
  Report Type: 
  Country: None (occurrence: None)
  Receive Date: 20110622
  Receipt Date: 20100920
  Transmission Date: 20111010
  Serious: Yes (Other)
  Sender: FDA-Public Use
  Company Number: US-MYLANLABS-2010S1011359

PATIENT
  Age: 45 Year
  Sex: Male
  Weight: 75.3 kg

DRUGS (6)
  1. LITHIUM CARBONATE [Concomitant]
  2. COCAINE [Concomitant]
  3. MARIJUANA [Concomitant]
  4. CLOZAPINE [Suspect]
     Indication: SCHIZOPHRENIA, PARANOID TYPE
     Route: 048
     Dates: start: 20050913, end: 20100628
  5. CLOZAPINE [Suspect]
     Route: 048
     Dates: start: 20100801, end: 20100826
  6. ALCOHOL [Concomitant]

REACTIONS (2)
  - GRANULOCYTOPENIA [None]
  - LEUKOPENIA [None]
